FAERS Safety Report 11377078 (Version 3)
Quarter: 2015Q4

REPORT INFORMATION
  Report Type: Spontaneous
  Country: JP (occurrence: JP)
  Receive Date: 20150813
  Receipt Date: 20151203
  Transmission Date: 20160304
  Serious: Yes (Hospitalization, Other)
  Sender: FDA-Public Use
  Company Number: JP-BRISTOL-MYERS SQUIBB COMPANY-BMS-2015-053535

PATIENT
  Age: 80 Year
  Sex: Female
  Weight: 43 kg

DRUGS (15)
  1. SHINLUCK [Concomitant]
     Active Substance: SODIUM PICOSULFATE
     Indication: CONSTIPATION
     Dosage: UNK
     Route: 048
     Dates: start: 20130403
  2. SUNVEPRA [Suspect]
     Active Substance: ASUNAPREVIR
     Indication: CHRONIC HEPATITIS C
     Dosage: 100 MG, BID
     Route: 048
     Dates: start: 20150526, end: 20150803
  3. ALSIODOL [Concomitant]
     Active Substance: ALFACALCIDOL
     Indication: DIALYSIS
     Dosage: 0.5 ?G, QD
     Route: 048
  4. VEMAS [Concomitant]
     Indication: CONSTIPATION
     Dosage: 2 DF, TID
     Route: 048
  5. FUROSEMIDE. [Concomitant]
     Active Substance: FUROSEMIDE
     Indication: DIALYSIS
     Dosage: 2 DF, BID
     Route: 048
  6. LANTUS [Concomitant]
     Active Substance: INSULIN GLARGINE
     Indication: DIABETES MELLITUS
     Dosage: 9 UNIT, QD
     Route: 042
  7. URSO [Concomitant]
     Active Substance: URSODIOL
     Indication: PRODUCT USED FOR UNKNOWN INDICATION
     Dosage: UNK
     Route: 048
  8. SENNOSIDE                          /00571901/ [Concomitant]
     Active Substance: SENNOSIDES A AND B
     Indication: CONSTIPATION
     Dosage: 1 DF, QD
     Route: 048
  9. RISUMIC [Concomitant]
     Active Substance: AMEZINIUM METILSULFATE
     Indication: DIALYSIS
     Dosage: UNK
     Route: 048
     Dates: start: 20150403
  10. CALTAN [Concomitant]
     Active Substance: CALCIUM CARBONATE
     Indication: DIALYSIS
     Dosage: UNK
     Route: 048
     Dates: start: 20120418
  11. DAKLINZA [Suspect]
     Active Substance: DACLATASVIR
     Indication: CHRONIC HEPATITIS C
     Dosage: 60 MG, QD
     Route: 048
     Dates: start: 20150526, end: 20150803
  12. NEO-MINOPHAGEN C [Concomitant]
     Active Substance: AMMONIUM GLYCYRRHIZATE
     Indication: PRODUCT USED FOR UNKNOWN INDICATION
     Dosage: 40 MG, QD
     Route: 042
     Dates: start: 20150804
  13. DIART [Concomitant]
     Active Substance: AZOSEMIDE
     Indication: DIALYSIS
     Dosage: 60 MG, QD
     Route: 048
  14. HUMALOG [Concomitant]
     Active Substance: INSULIN LISPRO
     Indication: DIABETES MELLITUS
     Dosage: UNK
     Route: 042
  15. DOPS [Concomitant]
     Active Substance: DROXIDOPA
     Indication: CONSTIPATION
     Dosage: 200 MG, QD
     Route: 048
     Dates: start: 20150403

REACTIONS (1)
  - Liver disorder [Recovering/Resolving]

NARRATIVE: CASE EVENT DATE: 20150803
